FAERS Safety Report 4570401-X (Version None)
Quarter: 2005Q1

REPORT INFORMATION
  Report Type: 
  Country: None (occurrence: None)
  Receive Date: 20050126
  Receipt Date: 20050126
  Transmission Date: 20050727
  Serious: Yes (Other)
  Sender: FDA-Public Use
  Company Number: None

PATIENT
  Age: 61 Year
  Sex: Female
  Weight: 56.246 kg

DRUGS (1)
  1. BROMFENAC 25 MG [Suspect]
     Indication: ARTHRALGIA
     Dosage: EVERY 6 HRS

REACTIONS (1)
  - HEPATIC NEOPLASM MALIGNANT [None]
